FAERS Safety Report 19034562 (Version 1)
Quarter: 2021Q1

REPORT INFORMATION
  Report Type: Spontaneous
  Country: ES (occurrence: ES)
  Receive Date: 20210319
  Receipt Date: 20210319
  Transmission Date: 20210420
  Serious: Yes (Death, Hospitalization)
  Sender: FDA-Public Use
  Company Number: ES-DSJP-DSE-2021-107548

PATIENT
  Age: 62 Year
  Sex: Female

DRUGS (2)
  1. LIXIANA [Suspect]
     Active Substance: EDOXABAN TOSYLATE
     Indication: ATRIAL FLUTTER
     Dosage: 60 MG, QD
     Route: 048
     Dates: start: 20190315, end: 20210216
  2. PLAVIX [Interacting]
     Active Substance: CLOPIDOGREL BISULFATE
     Indication: CORONARY ARTERIAL STENT INSERTION
     Dosage: 75 MG, QD
     Route: 048
     Dates: start: 20150624, end: 20210216

REACTIONS (4)
  - Retroperitoneal haematoma [Fatal]
  - Shock haemorrhagic [Fatal]
  - Haemoperitoneum [Fatal]
  - Drug interaction [Fatal]

NARRATIVE: CASE EVENT DATE: 20210216
